FAERS Safety Report 16775098 (Version 1)
Quarter: 2019Q3

REPORT INFORMATION
  Report Type: Spontaneous
  Country: US (occurrence: US)
  Receive Date: 20190715
  Receipt Date: 20190715
  Transmission Date: 20191005
  Serious: Yes (Hospitalization)
  Sender: FDA-Public Use
  Company Number: None

PATIENT
  Age: 69 Year
  Sex: Male
  Weight: 94 kg

DRUGS (1)
  1. METOPROLOL. [Suspect]
     Active Substance: METOPROLOL
     Indication: HYPERTENSION
     Dosage: ?          OTHER DOSE:12.5 MG;?
     Route: 048
     Dates: start: 20190614, end: 20190712

REACTIONS (1)
  - Bradycardia [None]

NARRATIVE: CASE EVENT DATE: 20190712
